FAERS Safety Report 15150785 (Version 2)
Quarter: 2018Q3

REPORT INFORMATION
  Report Type: Spontaneous
  Country: US (occurrence: US)
  Receive Date: 20180716
  Receipt Date: 20180814
  Transmission Date: 20181010
  Serious: Yes (Other)
  Sender: FDA-Public Use
  Company Number: US-AKORN PHARMACEUTICALS-2018AKN01007

PATIENT
  Sex: Female

DRUGS (1)
  1. MYORISAN [Suspect]
     Active Substance: ISOTRETINOIN
     Dosage: 60 MG, 2X/DAY
     Dates: start: 20180625

REACTIONS (2)
  - Depression [Not Recovered/Not Resolved]
  - Chloasma [Unknown]

NARRATIVE: CASE EVENT DATE: 2018
